FAERS Safety Report 4691816-5 (Version None)
Quarter: 2005Q2

REPORT INFORMATION
  Report Type: 
  Country: None (occurrence: None)
  Receive Date: 20050608
  Receipt Date: 20040712
  Transmission Date: 20051028
  Serious: Yes (Other)
  Sender: FDA-Public Use
  Company Number: 359800

PATIENT
  Sex: Female
  Weight: 3.6 kg

DRUGS (1)
  1. ACCUTANE [Suspect]
     Dosage: ORAL
     Route: 048
     Dates: start: 20010905, end: 20020515

REACTIONS (7)
  - LIVE BIRTH [None]
  - MECONIUM IN AMNIOTIC FLUID [None]
  - MECONIUM INCREASED [None]
  - PREGNANCY [None]
  - PREMATURE RUPTURE OF MEMBRANES [None]
  - SHOULDER DYSTOCIA [None]
  - UMBILICAL CORD AROUND NECK [None]
